FAERS Safety Report 5820343-4 (Version None)
Quarter: 2008Q3

REPORT INFORMATION
  Report Type: 
  Country: None (occurrence: None)
  Receive Date: 20080724
  Receipt Date: 20070611
  Transmission Date: 20090109
  Serious: No
  Sender: FDA-Public Use
  Company Number: A0655060A

PATIENT
  Age: 78 Year
  Sex: Female

DRUGS (11)
  1. AVANDIA [Suspect]
     Dosage: 8MG PER DAY
     Route: 048
  2. GLYBURIDE [Concomitant]
  3. ATENOLOL [Concomitant]
  4. LISINOPRIL [Concomitant]
  5. FLOMAX [Concomitant]
  6. LIPITOR [Concomitant]
  7. NEURONTIN [Concomitant]
  8. ASPIRIN [Concomitant]
  9. MULTIVITAMIN [Concomitant]
  10. PERCOCET [Concomitant]
  11. CALCIUM [Concomitant]

REACTIONS (2)
  - DRUG INEFFECTIVE [None]
  - MEDICATION RESIDUE [None]
